FAERS Safety Report 9264156 (Version 2)
Quarter: 2013Q4

REPORT INFORMATION
  Report Type: Spontaneous
  Country: US (occurrence: US)
  Receive Date: 20130430
  Receipt Date: 20131227
  Transmission Date: 20140711
  Serious: Yes (Hospitalization)
  Sender: FDA-Public Use
  Company Number: US-B.I. PHARMACEUTICALS,INC./RIDGEFIELD-2013-BI-11723BP

PATIENT
  Age: 79 Year
  Sex: Male
  Weight: 58.97 kg

DRUGS (10)
  1. PRADAXA [Suspect]
     Indication: ANTICOAGULANT THERAPY
     Dates: start: 20110401, end: 20110418
  2. CRESTOR [Concomitant]
     Dosage: 5 MG
  3. ZESTRIL [Concomitant]
     Dosage: 20 MG
  4. LASIX [Concomitant]
     Dosage: 40 MG
  5. DIGOXIN [Concomitant]
     Dosage: 0.0893 MG
  6. FLOMAX [Concomitant]
     Dosage: 0.4 MG
  7. ASPIRIN [Concomitant]
     Dosage: 325 MG
  8. SPIRIVA [Concomitant]
     Dosage: 36 MCG
  9. ADVAIR [Concomitant]
  10. VENTOLIN [Concomitant]

REACTIONS (2)
  - Small intestinal haemorrhage [Unknown]
  - Anaemia [Unknown]
